FAERS Safety Report 9829821 (Version 1)
Quarter: 2014Q1

REPORT INFORMATION
  Report Type: Spontaneous
  Country: GB (occurrence: GB)
  Receive Date: 20140120
  Receipt Date: 20140120
  Transmission Date: 20141002
  Serious: Yes (Disabling)
  Sender: FDA-Public Use
  Company Number: GB-RANBAXY-2014R1-77188

PATIENT
  Age: 55 Year
  Sex: Male
  Weight: 76.65 kg

DRUGS (4)
  1. CLARITHROMYCIN [Suspect]
     Indication: BRONCHITIS
     Dosage: I CANT REMEMBER
     Route: 048
     Dates: start: 20130923, end: 20130930
  2. KIVEXA [Concomitant]
     Indication: PRODUCT USED FOR UNKNOWN INDICATION
     Dosage: UNK
     Route: 065
  3. RAMIPRIL [Concomitant]
     Indication: PRODUCT USED FOR UNKNOWN INDICATION
     Dosage: UNK
     Route: 065
  4. NEVIRAPIN [Concomitant]
     Indication: PRODUCT USED FOR UNKNOWN INDICATION
     Dosage: UNK
     Route: 065

REACTIONS (2)
  - Palpitations [Recovered/Resolved]
  - Deafness neurosensory [Not Recovered/Not Resolved]
